FAERS Safety Report 7798260-2 (Version None)
Quarter: 2011Q4

REPORT INFORMATION
  Report Type: 
  Country: None (occurrence: None)
  Receive Date: 20111005
  Receipt Date: 20110929
  Transmission Date: 20120403
  Serious: Yes (Life-Threatening, Other)
  Sender: FDA-Public Use
  Company Number: DE-ROXANE LABORATORIES, INC.-2011-RO-01372RO

PATIENT
  Age: 28 Year
  Sex: Male

DRUGS (3)
  1. ETOPOSIDE [Suspect]
     Indication: MEDULLOBLASTOMA
  2. TEMOZOLOMIDE [Suspect]
     Indication: MEDULLOBLASTOMA
  3. DEXAMETHASONE [Suspect]
     Indication: MEDULLOBLASTOMA

REACTIONS (5)
  - PNEUMONIA STAPHYLOCOCCAL [None]
  - SUBCUTANEOUS ABSCESS [None]
  - ACUTE RESPIRATORY DISTRESS SYNDROME [None]
  - ASPERGILLOSIS [None]
  - PNEUMOCYSTIS JIROVECI INFECTION [None]
